FAERS Safety Report 11546226 (Version 1)
Quarter: 2015Q3

REPORT INFORMATION
  Report Type: Spontaneous
  Country: AL (occurrence: AL)
  Receive Date: 20150924
  Receipt Date: 20150924
  Transmission Date: 20151125
  Serious: Yes (Death, Life-Threatening, Hospitalization, Disabling, Congenital Anomaly, Other)
  Sender: FDA-Public Use
  Company Number: PHHY2015AL115454

PATIENT
  Age: 23 Year
  Sex: Female

DRUGS (1)
  1. VOLTAREN [Suspect]
     Active Substance: DICLOFENAC SODIUM
     Indication: PRODUCT USED FOR UNKNOWN INDICATION
     Dosage: 20 MG, QD (EAR DROP)
     Route: 050
     Dates: start: 20150901, end: 20150901

REACTIONS (2)
  - Maternal exposure during pregnancy [Unknown]
  - Angioedema [Fatal]

NARRATIVE: CASE EVENT DATE: 20150901
